FAERS Safety Report 5585827-5 (Version None)
Quarter: 2007Q4

REPORT INFORMATION
  Report Type: 
  Country: None (occurrence: None)
  Receive Date: 20071205
  Receipt Date: 20070416
  Transmission Date: 20080405
  Serious: Yes (Other)
  Sender: FDA-Public Use
  Company Number: HQWYE618918APR07

PATIENT
  Age: 62 Year
  Sex: Female
  Weight: 93.07 kg

DRUGS (3)
  1. EFFEXOR XR [Suspect]
     Indication: DEPRESSION
     Dosage: UNSPECIFIED DOSE ^2 CAPSULES IN THE MORNING AND ONE IN THE EVENING^, ORAL
     Route: 048
  2. LIPITOR [Concomitant]
  3. WELLBUTRIN [Concomitant]

REACTIONS (5)
  - CONDITION AGGRAVATED [None]
  - DEPRESSION [None]
  - DIZZINESS [None]
  - DRUG EFFECT DECREASED [None]
  - SUICIDAL IDEATION [None]
